FAERS Safety Report 22225003 (Version 1)
Quarter: 2023Q2

REPORT INFORMATION
  Report Type: Spontaneous
  Country: US (occurrence: US)
  Receive Date: 20230418
  Receipt Date: 20230418
  Transmission Date: 20230721
  Serious: No
  Sender: FDA-Public Use
  Company Number: US-PFIZER INC-PV202300069155

PATIENT
  Age: 77 Year
  Sex: Female

DRUGS (2)
  1. XELJANZ [Suspect]
     Active Substance: TOFACITINIB CITRATE
     Dosage: UNK
  2. ENTYVIO [Suspect]
     Active Substance: VEDOLIZUMAB
     Indication: Colitis ulcerative
     Dosage: UNK

REACTIONS (2)
  - Condition aggravated [Unknown]
  - Contraindicated product administered [Unknown]
